FAERS Safety Report 8846107 (Version 1)
Quarter: 2012Q4

REPORT INFORMATION
  Report Type: 
  Country: US (occurrence: US)
  Receive Date: 20121017
  Receipt Date: 20121017
  Transmission Date: 20130627
  Serious: Yes (Death, Other)
  Sender: FDA-Public Use
  Company Number: US-ROXANE LABORATORIES, INC.-2012-RO-01996RO

PATIENT
  Age: 38 Year
  Sex: Male

DRUGS (2)
  1. PREDNISONE [Suspect]
     Indication: PEMPHIGUS
     Dosage: 120 mg
  2. AZATHIOPRINE [Suspect]
     Indication: PEMPHIGUS
     Dosage: 50 mg

REACTIONS (11)
  - Disseminated intravascular coagulation [Fatal]
  - Herpes zoster [Unknown]
  - Molluscum contagiosum [Unknown]
  - Furuncle [Unknown]
  - Cellulitis [Unknown]
  - Staphylococcal skin infection [Unknown]
  - Urinary tract infection [Unknown]
  - Diabetes mellitus [Unknown]
  - Candidiasis [Unknown]
  - Calculus urinary [Unknown]
  - Hydronephrosis [Unknown]
